FAERS Safety Report 7396475-9 (Version None)
Quarter: 2011Q2

REPORT INFORMATION
  Report Type: 
  Country: None (occurrence: None)
  Receive Date: 20110406
  Receipt Date: 20101007
  Transmission Date: 20111010
  Serious: Yes (Hospitalization, Other)
  Sender: FDA-Public Use
  Company Number: US-BAYER-201015815NA

PATIENT
  Sex: Female
  Weight: 122.45 kg

DRUGS (3)
  1. YAZ [Suspect]
     Route: 048
     Dates: start: 20060101, end: 20090101
  2. IBUPROFEN [Concomitant]
  3. HYDROCHLOROTHIAZIDE [Concomitant]

REACTIONS (1)
  - CEREBELLAR INFARCTION [None]
